FAERS Safety Report 6746681-9 (Version None)
Quarter: 2010Q2

REPORT INFORMATION
  Report Type: 
  Country: None (occurrence: None)
  Receive Date: 20100528
  Receipt Date: 20100520
  Transmission Date: 20101027
  Serious: Yes (Other)
  Sender: FDA-Public Use
  Company Number: US-PFIZER INC-2010063842

PATIENT
  Sex: Female

DRUGS (2)
  1. XANAX [Suspect]
     Indication: ANXIETY
     Dosage: UNK
     Dates: start: 20080101, end: 20100520
  2. XANAX [Suspect]
     Indication: DEPRESSION

REACTIONS (2)
  - COLON CANCER [None]
  - GASTRIC CANCER [None]
